FAERS Safety Report 4319656-7 (Version None)
Quarter: 2004Q1

REPORT INFORMATION
  Report Type: 
  Country: None (occurrence: None)
  Receive Date: 20040316
  Receipt Date: 20040302
  Transmission Date: 20041129
  Serious: Yes (Other)
  Sender: FDA-Public Use
  Company Number: NSADSS2002036258

PATIENT
  Age: 24 Year
  Sex: Female
  Weight: 45.3597 kg

DRUGS (2)
  1. ORTHO EVRA [Suspect]
     Indication: CONTRACEPTION
     Dosage: 1, 3 IN 4 WEEK, TRANSDERMAL
     Route: 062
     Dates: start: 20020801, end: 20020901
  2. ORTHO CYCLEN-21 [Suspect]
     Indication: CONTRACEPTION
     Dosage: 1, ORAL
     Route: 048
     Dates: end: 20020801

REACTIONS (8)
  - ABORTION SPONTANEOUS [None]
  - ACNE [None]
  - COMPLICATIONS OF MATERNAL EXPOSURE TO THERAPEUTIC DRUGS [None]
  - ECTOPIC PREGNANCY [None]
  - HAEMORRHAGE [None]
  - MATERNAL DRUGS AFFECTING FOETUS [None]
  - MUSCLE CRAMP [None]
  - SMEAR CERVIX ABNORMAL [None]
